FAERS Safety Report 12760665 (Version 1)
Quarter: 2016Q3

REPORT INFORMATION
  Report Type: Spontaneous
  Country: HR (occurrence: HR)
  Receive Date: 20160919
  Receipt Date: 20160919
  Transmission Date: 20161109
  Serious: Yes (Death, Hospitalization)
  Sender: FDA-Public Use
  Company Number: HR-TEVA-693030ISR

PATIENT
  Age: 66 Year
  Sex: Male

DRUGS (5)
  1. AMOXICILLIN AND CLAVULANIC ACID [Concomitant]
     Active Substance: AMOXICILLIN\CLAVULANIC ACID
     Indication: SWELLING
     Route: 065
  2. HALOPERIDOL. [Interacting]
     Active Substance: HALOPERIDOL
     Indication: ABNORMAL BEHAVIOUR
     Dosage: 1 MG TWICE DAILY FOR AT LEAST 2 WEEKS AND ON FIRST DAY OF HOSPITAL 1 MG
     Route: 048
  3. CIPROFLOXACIN. [Suspect]
     Active Substance: CIPROFLOXACIN
     Indication: URINARY TRACT INFECTION
     Dosage: FOR 5 DAYS PRIOR TO ADMISSION
     Route: 065
  4. HALOPERIDOL. [Interacting]
     Active Substance: HALOPERIDOL
     Indication: PERSONALITY CHANGE DUE TO A GENERAL MEDICAL CONDITION
     Dosage: 1 MG TWICE DAILY FOR AT LEAST 2 WEEKS AND ON FIRST DAY OF HOSPITAL 1 MG
     Route: 048
  5. PARACETAMOL [Concomitant]
     Active Substance: ACETAMINOPHEN
     Indication: BODY TEMPERATURE INCREASED
     Route: 065

REACTIONS (4)
  - Autonomic nervous system imbalance [Unknown]
  - Extrapyramidal disorder [Recovered/Resolved]
  - Drug interaction [Recovered/Resolved]
  - Cardiac arrest [Fatal]
